FAERS Safety Report 19785665 (Version 1)
Quarter: 2021Q3

REPORT INFORMATION
  Report Type: Spontaneous
  Country: US (occurrence: US)
  Receive Date: 20210903
  Receipt Date: 20210903
  Transmission Date: 20211014
  Serious: No
  Sender: FDA-Public Use
  Company Number: US-ASTRAZENECA-2021A614413

PATIENT
  Sex: Female
  Weight: 63.5 kg

DRUGS (1)
  1. BYDUREON BCISE [Suspect]
     Active Substance: EXENATIDE
     Route: 065
     Dates: start: 20180718

REACTIONS (3)
  - Injection site pain [Unknown]
  - Injection site bruising [Not Recovered/Not Resolved]
  - Product use issue [Unknown]
